FAERS Safety Report 7997650 (Version 7)
Quarter: 2012Q4

REPORT INFORMATION
  Report Type: Report from Study
  Country: DE (occurrence: DE)
  Receive Date: 20110620
  Receipt Date: 20120917
  Transmission Date: 20130627
  Serious: Yes (Hospitalization, Other)
  Sender: FDA-Public Use
  Company Number: PHHY2011DE49982

PATIENT
  Age: 84 Year
  Sex: Female
  Weight: 65 kg

DRUGS (5)
  1. ZOLEDRONATE [Suspect]
     Indication: BONE DISORDER
     Dosage: 4 mg, every 4 weeks
     Route: 042
     Dates: start: 20110106, end: 20111117
  2. TRASTUZUMAB [Concomitant]
     Dosage: UNK
     Dates: start: 200802
  3. METAMIZOLE [Concomitant]
     Indication: PAIN
     Dosage: 500 mg, UNK
     Route: 048
     Dates: start: 20110329, end: 20110507
  4. IBUPROFEN [Concomitant]
     Indication: PAIN
     Dosage: 600 mg, daily
     Route: 048
     Dates: start: 20110329
  5. NOVAMIN [Concomitant]
     Indication: PAIN
     Dosage: 30 mg, Daily
     Route: 048
     Dates: start: 20110329

REACTIONS (5)
  - Fall [Recovered/Resolved]
  - Femur fracture [Recovered/Resolved]
  - General physical health deterioration [Not Recovered/Not Resolved]
  - Renal failure [Not Recovered/Not Resolved]
  - Blood creatinine increased [Not Recovered/Not Resolved]
